FAERS Safety Report 4404126-8 (Version None)
Quarter: 2004Q3

REPORT INFORMATION
  Report Type: 
  Country: None (occurrence: None)
  Receive Date: 20040719
  Receipt Date: 20040712
  Transmission Date: 20050211
  Serious: No
  Sender: FDA-Public Use
  Company Number: 04P-167-0258930-00

PATIENT
  Age: 26 Year
  Sex: Female
  Weight: 63.4 kg

DRUGS (3)
  1. ERYTHROMYCIN [Suspect]
     Indication: ACNE
     Dosage: 250 MG, 2 IN 1 D
     Dates: start: 20040229
  2. INSULIN ASPART [Concomitant]
  3. INSULIN GLARGINE [Concomitant]

REACTIONS (2)
  - DRUG EXPOSURE DURING PREGNANCY [None]
  - HYPOGLYCAEMIA [None]
